FAERS Safety Report 6821060-4 (Version None)
Quarter: 2010Q3

REPORT INFORMATION
  Report Type: 
  Country: None (occurrence: None)
  Receive Date: 20100707
  Receipt Date: 20071009
  Transmission Date: 20110219
  Serious: Yes (Other)
  Sender: FDA-Public Use
  Company Number: US-PFIZER INC-2007085507

PATIENT
  Sex: Male
  Weight: 88.5 kg

DRUGS (1)
  1. ZOLOFT [Suspect]
     Indication: FEELING OF RELAXATION
     Dates: end: 20071008

REACTIONS (1)
  - GASTROINTESTINAL HAEMORRHAGE [None]
